FAERS Safety Report 24260998 (Version 3)
Quarter: 2024Q3

REPORT INFORMATION
  Report Type: Spontaneous
  Country: AU (occurrence: AU)
  Receive Date: 20240829
  Receipt Date: 20240923
  Transmission Date: 20241017
  Serious: Yes (Other)
  Sender: ROCHE
  Company Number: AU-ROCHE-10000065727

PATIENT
  Age: 53 Year
  Sex: Female

DRUGS (1)
  1. VABYSMO [Suspect]
     Active Substance: FARICIMAB\FARICIMAB-SVOA
     Indication: Diabetic retinal oedema
     Dosage: 9/FEB/24, 8/MARCH/24, 16/MAY/2024, 28/JUNE/2024
     Route: 065
     Dates: start: 20231211

REACTIONS (2)
  - Uveitic glaucoma [Unknown]
  - Retinitis [Recovered/Resolved]
